FAERS Safety Report 18307790 (Version 1)
Quarter: 2020Q3

REPORT INFORMATION
  Report Type: Spontaneous
  Country: CA (occurrence: CA)
  Receive Date: 20200924
  Receipt Date: 20200924
  Transmission Date: 20201103
  Serious: Yes (Hospitalization)
  Sender: FDA-Public Use
  Company Number: CA-PFIZER INC-2020368265

PATIENT
  Age: 76 Year
  Sex: Female

DRUGS (14)
  1. BISOPROLOL [Concomitant]
     Active Substance: BISOPROLOL
  2. PREDNISONE. [Concomitant]
     Active Substance: PREDNISONE
  3. IRBESARTAN. [Concomitant]
     Active Substance: IRBESARTAN
  4. ROSUVASTATIN. [Concomitant]
     Active Substance: ROSUVASTATIN
  5. SALBUTAMOL HFA [Concomitant]
     Active Substance: ALBUTEROL
  6. OMNARIS [Concomitant]
     Active Substance: CICLESONIDE
  7. VENLAFAXINE XR [Concomitant]
     Active Substance: VENLAFAXINE HYDROCHLORIDE
  8. METHOTREXATE. [Concomitant]
     Active Substance: METHOTREXATE
  9. METFORMIN [Concomitant]
     Active Substance: METFORMIN HYDROCHLORIDE
  10. SYNTHROID [Concomitant]
     Active Substance: LEVOTHYROXINE SODIUM
  11. NITRO?SPRAY [Suspect]
     Active Substance: ISOSORBIDE DINITRATE
  12. METHOTREXATE SODIUM. [Suspect]
     Active Substance: METHOTREXATE SODIUM
     Dosage: UNK
  13. CETIRIZINE [Concomitant]
     Active Substance: CETIRIZINE HYDROCHLORIDE
  14. NITROGLYCERIN. [Concomitant]
     Active Substance: NITROGLYCERIN

REACTIONS (8)
  - Acute kidney injury [Recovering/Resolving]
  - Stomatitis [Recovering/Resolving]
  - Toxicity to various agents [Recovering/Resolving]
  - Pancytopenia [Recovering/Resolving]
  - Nausea [Recovering/Resolving]
  - Decreased appetite [Recovering/Resolving]
  - Fluid intake reduced [Recovering/Resolving]
  - Retching [Recovering/Resolving]
